FAERS Safety Report 7120523-4 (Version None)
Quarter: 2010Q4

REPORT INFORMATION
  Report Type: 
  Country: None (occurrence: None)
  Receive Date: 20101124
  Receipt Date: 20101117
  Transmission Date: 20110411
  Serious: Yes (Hospitalization, Other)
  Sender: FDA-Public Use
  Company Number: US-PFIZER INC-2010154201

PATIENT
  Sex: Female
  Weight: 76.6 kg

DRUGS (9)
  1. EFFEXOR XR [Suspect]
     Indication: DEPRESSION
     Dosage: 150 MG, 2X/DAY
     Route: 048
     Dates: end: 20100401
  2. VENLAFAXINE HCL [Suspect]
     Dosage: 150 MG, 2X/DAY
     Dates: start: 20100401, end: 20101001
  3. OMEPRAZOLE [Concomitant]
     Dosage: 20 MG, 1X/DAY
     Route: 048
  4. CARBAMAZEPINE [Concomitant]
     Dosage: 200 MG, 3X/DAY
  5. CARVEDILOL [Concomitant]
     Dosage: 12.5 MG, 2X/DAY
  6. IBUPROFEN [Concomitant]
     Dosage: 800 MG, 3X/DAY
  7. TRAZODONE HYDROCHLORIDE [Concomitant]
     Dosage: 100 MG, 1X/DAY
  8. DIAZEPAM [Concomitant]
     Dosage: 10 MG, UNK
  9. CENTRUM SILVER [Concomitant]
     Dosage: UNK

REACTIONS (12)
  - ACCIDENT AT WORK [None]
  - ARTHRALGIA [None]
  - BODY TEMPERATURE FLUCTUATION [None]
  - CHEST INJURY [None]
  - INFLUENZA LIKE ILLNESS [None]
  - LUMBAR RADICULOPATHY [None]
  - MUSCLE STRAIN [None]
  - NAUSEA [None]
  - PAIN [None]
  - PELVIC PAIN [None]
  - VOMITING [None]
  - WITHDRAWAL SYNDROME [None]
